FAERS Safety Report 10073094 (Version 3)
Quarter: 2014Q2

REPORT INFORMATION
  Report Type: Report from Study
  Country: US (occurrence: US)
  Receive Date: 20140411
  Receipt Date: 20140613
  Transmission Date: 20141212
  Serious: Yes (Disabling, Other)
  Sender: FDA-Public Use
  Company Number: PHEH2014US006967

PATIENT
  Age: 63 Year
  Sex: Female
  Weight: 140 kg

DRUGS (6)
  1. EXFORGE [Suspect]
     Indication: HYPERTENSION
     Dosage: 1 DF, QD  (VALS 320MG, AMLO 10MG)
     Route: 048
     Dates: start: 20080421
  2. ATENOLOL [Concomitant]
     Indication: HEART RATE INCREASED
  3. PRAVASTATIN [Concomitant]
  4. CITALOPRAM [Concomitant]
  5. ALPRAZOLAM [Concomitant]
     Indication: ANXIETY
  6. TRAMADOL [Concomitant]

REACTIONS (3)
  - Chronic obstructive pulmonary disease [Not Recovered/Not Resolved]
  - Sinus disorder [Unknown]
  - Hypertension [Unknown]
